FAERS Safety Report 7110421-4 (Version None)
Quarter: 2010Q4

REPORT INFORMATION
  Report Type: 
  Country: None (occurrence: None)
  Receive Date: 20101118
  Receipt Date: 20101108
  Transmission Date: 20110411
  Serious: Yes (Other)
  Sender: FDA-Public Use
  Company Number: BR-MEDIMMUNE-MEDI-0011511

PATIENT
  Sex: Female
  Weight: 7 kg

DRUGS (11)
  1. SYNAGIS [Suspect]
     Route: 030
     Dates: start: 20100419, end: 20100419
  2. SYNAGIS [Suspect]
     Route: 030
     Dates: start: 20100521, end: 20100728
  3. CAPTOPRIL [Concomitant]
     Route: 048
     Dates: start: 20091101
  4. ACETYLSALICYLIC ACID SRT [Concomitant]
     Indication: ANTICOAGULANT THERAPY
     Route: 048
     Dates: start: 20091101
  5. POTASSIUM CHLORIDE [Concomitant]
     Route: 048
  6. HYDROCHLOROTHIAZIDE [Concomitant]
     Indication: DIURETIC THERAPY
     Route: 048
     Dates: start: 20100701
  7. HYDROCHLOROTHIAZIDE [Concomitant]
     Indication: BLOOD PRESSURE
  8. RANITIDINE [Concomitant]
     Route: 048
     Dates: start: 20100701
  9. SPIRONOLACTONE [Concomitant]
     Indication: DIURETIC THERAPY
     Route: 048
     Dates: start: 20100701
  10. DIMETICONE [Concomitant]
     Indication: FLATULENCE
     Route: 048
     Dates: start: 20100701
  11. PELARGONIUM SIDOIDES [Concomitant]
     Route: 048
     Dates: start: 20100801

REACTIONS (3)
  - ANAEMIA [None]
  - COUGH [None]
  - INFLUENZA [None]
